FAERS Safety Report 9178619 (Version 1)
Quarter: 2013Q1

REPORT INFORMATION
  Report Type: Spontaneous
  Country: AR (occurrence: AR)
  Receive Date: 20130321
  Receipt Date: 20130321
  Transmission Date: 20140127
  Serious: Yes (Hospitalization)
  Sender: FDA-Public Use
  Company Number: PHHY2013AR027314

PATIENT
  Age: 83 Year
  Sex: Female

DRUGS (1)
  1. DIOVAN [Suspect]
     Indication: HYPERTENSION
     Dosage: 320 MG DAILY
     Route: 048
     Dates: end: 201210

REACTIONS (2)
  - Osteoarthritis [Recovering/Resolving]
  - Limb deformity [Recovering/Resolving]
